FAERS Safety Report 12527467 (Version 1)
Quarter: 2016Q3

REPORT INFORMATION
  Report Type: Spontaneous
  Country: JP (occurrence: JP)
  Receive Date: 20160705
  Receipt Date: 20160705
  Transmission Date: 20161109
  Serious: Yes (Hospitalization, Other)
  Sender: FDA-Public Use
  Company Number: JP-PFIZER INC-2016314232

PATIENT
  Age: 88 Year
  Sex: Female
  Weight: 46 kg

DRUGS (7)
  1. HALCION [Suspect]
     Active Substance: TRIAZOLAM
     Indication: INSOMNIA
     Dosage: 0.125 MG, 1X/DAY
     Route: 048
     Dates: start: 20060117
  2. RANITIDINE. [Concomitant]
     Active Substance: RANITIDINE
     Dosage: 75 MG, 2X/DAY
     Route: 048
  3. JZOLOFT [Concomitant]
     Active Substance: SERTRALINE HYDROCHLORIDE
     Indication: DEPRESSION
     Dosage: 25 MG, 1X/DAY
     Route: 048
  4. MOBIC [Concomitant]
     Active Substance: MELOXICAM
     Dosage: 10 MG, 1X/DAY
     Route: 048
  5. HYALEIN [Concomitant]
     Active Substance: HYALURONATE SODIUM
     Route: 047
  6. HALCION [Suspect]
     Active Substance: TRIAZOLAM
     Dosage: 0.125 MG, 1X/DAY
     Route: 048
     Dates: start: 20060117, end: 20140902
  7. SANCOBA [Concomitant]
     Active Substance: CYANOCOBALAMIN
     Route: 047

REACTIONS (15)
  - Headache [Recovering/Resolving]
  - Somnolence [None]
  - Dementia [Recovering/Resolving]
  - Hypoaesthesia [None]
  - Abdominal discomfort [None]
  - Vomiting [None]
  - Incontinence [None]
  - Daydreaming [None]
  - Muscular weakness [None]
  - Nausea [None]
  - Reduced facial expression [None]
  - Dizziness [Recovering/Resolving]
  - Inappropriate schedule of drug administration [None]
  - Insomnia [None]
  - Gait disturbance [None]

NARRATIVE: CASE EVENT DATE: 20140812
